FAERS Safety Report 5267434-7 (Version None)
Quarter: 2007Q1

REPORT INFORMATION
  Report Type: 
  Country: None (occurrence: None)
  Receive Date: 20070316
  Receipt Date: 20070307
  Transmission Date: 20070707
  Serious: Yes (Death, Hospitalization)
  Sender: FDA-Public Use
  Company Number: PA-ROCHE-486064

PATIENT
  Age: 68 Year
  Sex: Male
  Weight: 44.2 kg

DRUGS (2)
  1. CAPECITABINE [Suspect]
     Indication: GASTRIC CANCER
     Dosage: GIVEN FOR 14 DAYS EVERY 3 WEEKS (FROM PM OF DAY 1 TO AM OF DAY 15).
     Route: 048
     Dates: start: 20070207, end: 20070307
  2. CISPLATIN [Suspect]
     Indication: GASTRIC CANCER
     Dosage: DOSAGE FORM REPORTED AS INFUSION.
     Route: 042
     Dates: start: 20070207, end: 20070307

REACTIONS (2)
  - PNEUMONIA [None]
  - SEPSIS [None]
